FAERS Safety Report 13442049 (Version 1)
Quarter: 2017Q2

REPORT INFORMATION
  Report Type: Spontaneous
  Country: US (occurrence: US)
  Receive Date: 20170414
  Receipt Date: 20170414
  Transmission Date: 20170830
  Serious: No
  Sender: FDA-Public Use
  Company Number: US-TEVA-751577ACC

PATIENT
  Age: 1 Year
  Sex: Female
  Weight: 90.8 kg

DRUGS (2)
  1. PARAGARD T 380A [Suspect]
     Active Substance: COPPER
     Dates: start: 20050718
  2. PARAGARD T 380A [Suspect]
     Active Substance: COPPER
     Indication: CONTRACEPTION
     Dates: start: 20150721

REACTIONS (2)
  - Product use issue [Unknown]
  - Discomfort [Unknown]

NARRATIVE: CASE EVENT DATE: 20161220
